FAERS Safety Report 22137787 (Version 2)
Quarter: 2023Q2

REPORT INFORMATION
  Report Type: Spontaneous
  Country: UY (occurrence: None)
  Receive Date: 20230325
  Receipt Date: 20230608
  Transmission Date: 20230722
  Serious: Yes (Other)
  Sender: FDA-Public Use
  Company Number: UY-ROCHE-3316673

PATIENT
  Age: 70 Year
  Sex: Male

DRUGS (1)
  1. ACTEMRA [Suspect]
     Active Substance: TOCILIZUMAB
     Indication: Arthritis
     Dosage: 162MG/0.9ML
     Route: 058

REACTIONS (1)
  - Femur fracture [Unknown]
